FAERS Safety Report 13670389 (Version 2)
Quarter: 2017Q3

REPORT INFORMATION
  Report Type: Spontaneous
  Country: FR (occurrence: FR)
  Receive Date: 20170620
  Receipt Date: 20170707
  Transmission Date: 20171127
  Serious: Yes (Hospitalization)
  Sender: FDA-Public Use
  Company Number: FR-ELI_LILLY_AND_COMPANY-FR201706004439

PATIENT
  Sex: Male

DRUGS (3)
  1. HUMALOG [Suspect]
     Active Substance: INSULIN LISPRO
     Indication: TYPE 1 DIABETES MELLITUS
     Dosage: 6 IU, EACH MORNING
     Route: 065
     Dates: start: 20170527, end: 20170603
  2. HUMALOG [Suspect]
     Active Substance: INSULIN LISPRO
     Dosage: 12 IU, BID
     Route: 065
     Dates: start: 20170527, end: 20170603
  3. HUMALOG [Suspect]
     Active Substance: INSULIN LISPRO
     Dosage: 0.7 IU, EVERY HOUR
     Dates: start: 20170527, end: 20170603

REACTIONS (2)
  - Glycosylated haemoglobin increased [Recovered/Resolved]
  - Diabetic ketoacidosis [Unknown]
